FAERS Safety Report 22636023 (Version 2)
Quarter: 2023Q2

REPORT INFORMATION
  Report Type: Spontaneous
  Country: US (occurrence: US)
  Receive Date: 20230623
  Receipt Date: 20230629
  Transmission Date: 20230722
  Serious: Yes (Hospitalization, Other)
  Sender: FDA-Public Use
  Company Number: US-PFIZER INC-202300227887

PATIENT
  Age: 12 Year
  Sex: Male
  Weight: 30.5 kg

DRUGS (4)
  1. HUMATROPE [Suspect]
     Active Substance: SOMATROPIN
     Indication: Growth hormone deficiency
     Dosage: 0.8 MG, DAILY
  2. HUMATROPE [Suspect]
     Active Substance: SOMATROPIN
     Dosage: 0.18 MG/KG/WEEK
  3. INSULIN NOS [Suspect]
     Active Substance: INSULIN NOS
     Indication: Type 1 diabetes mellitus
     Dosage: UNK
  4. INSULIN NOS [Suspect]
     Active Substance: INSULIN NOS
     Indication: Growth hormone deficiency

REACTIONS (1)
  - Type 1 diabetes mellitus [Unknown]
